FAERS Safety Report 22529809 (Version 1)
Quarter: 2023Q2

REPORT INFORMATION
  Report Type: Spontaneous
  Country: US (occurrence: None)
  Receive Date: 20230605
  Receipt Date: 20230605
  Transmission Date: 20230722
  Serious: Yes (Other)
  Sender: FDA-Public Use
  Company Number: None

PATIENT
  Sex: Female

DRUGS (1)
  1. XELODA [Suspect]
     Active Substance: CAPECITABINE
     Dosage: FREQUENCY : TWICE A DAY;?
     Route: 048

REACTIONS (11)
  - Blood calcium increased [None]
  - Vitamin D increased [None]
  - Gastrooesophageal reflux disease [None]
  - Eructation [None]
  - Flatulence [None]
  - Neuropathy peripheral [None]
  - Fall [None]
  - Dizziness [None]
  - Scratch [None]
  - Contusion [None]
  - Regurgitation [None]
